FAERS Safety Report 17050769 (Version 1)
Quarter: 2019Q4

REPORT INFORMATION
  Report Type: Spontaneous
  Country: IE (occurrence: IE)
  Receive Date: 20191119
  Receipt Date: 20191119
  Transmission Date: 20200122
  Serious: Yes (Other)
  Sender: FDA-Public Use
  Company Number: IE-BIOGEN-2019BI00785052

PATIENT
  Age: 58 Year
  Sex: Female

DRUGS (2)
  1. FAMPYRA [Suspect]
     Active Substance: DALFAMPRIDINE
     Indication: GAIT DISTURBANCE
     Route: 048
     Dates: start: 20190818
  2. AMANTADINE. [Concomitant]
     Active Substance: AMANTADINE HYDROCHLORIDE
     Indication: FATIGUE
     Route: 065
     Dates: start: 2012

REACTIONS (7)
  - Haemorrhage [Unknown]
  - Urinary incontinence [Recovered/Resolved]
  - Seizure [Recovered/Resolved]
  - Amnesia [Recovered/Resolved]
  - Tongue biting [Recovered/Resolved]
  - Abnormal sleep-related event [Recovered/Resolved]
  - Urinary tract infection [Recovered/Resolved]

NARRATIVE: CASE EVENT DATE: 20190826
